FAERS Safety Report 9332579 (Version 1)
Quarter: 2013Q2

REPORT INFORMATION
  Report Type: Spontaneous
  Country: US (occurrence: US)
  Receive Date: 20130606
  Receipt Date: 20130606
  Transmission Date: 20140414
  Serious: No
  Sender: FDA-Public Use
  Company Number: US-009507513-1306USA000349

PATIENT
  Sex: Female

DRUGS (9)
  1. JANUVIA [Suspect]
     Indication: TYPE 2 DIABETES MELLITUS
     Dosage: 100 MG, ONCE A DAY
     Route: 048
  2. TRAZODONE HYDROCHLORIDE [Concomitant]
  3. SIMVASTATIN TABLETS, USP [Concomitant]
  4. PRINIVIL [Concomitant]
  5. CITALOPRAM [Concomitant]
  6. GLIPIZIDE [Concomitant]
  7. COREG [Concomitant]
  8. ISOSORBIDE MONONITRATE [Concomitant]
  9. NASONEX [Concomitant]

REACTIONS (3)
  - Blood glucose fluctuation [Unknown]
  - Diarrhoea [Unknown]
  - Medication residue present [Unknown]
